FAERS Safety Report 11990931 (Version 1)
Quarter: 2016Q1

REPORT INFORMATION
  Report Type: Spontaneous
  Country: CN (occurrence: CN)
  Receive Date: 20160202
  Receipt Date: 20160202
  Transmission Date: 20160526
  Serious: Yes (Hospitalization)
  Sender: FDA-Public Use
  Company Number: CN-BAUSCH-BL-2016-002691

PATIENT
  Age: 48 Year
  Sex: Male

DRUGS (15)
  1. CARBAMAZEPINE. [Suspect]
     Active Substance: CARBAMAZEPINE
     Indication: BREAKTHROUGH PAIN
     Route: 048
  2. FENTANYL. [Concomitant]
     Active Substance: FENTANYL
     Indication: BREAKTHROUGH PAIN
     Route: 062
  3. FENTANYL. [Concomitant]
     Active Substance: FENTANYL
     Route: 062
  4. DULOXETINE. [Concomitant]
     Active Substance: DULOXETINE
     Indication: BREAKTHROUGH PAIN
     Dosage: DULOXETINE ENTERIC CAPSULE (120 MG) ONCE EACH NIGHT
     Route: 048
  5. MOSAPRIDE CITRATE [Suspect]
     Active Substance: MOSAPRIDE CITRATE
     Indication: PRODUCT USED FOR UNKNOWN INDICATION
     Route: 048
  6. OXYCODONE AND ACETAMINOPHEN [Concomitant]
     Active Substance: ACETAMINOPHEN\OXYCODONE HYDROCHLORIDE
     Indication: NEURALGIA
     Route: 048
  7. GABAPENTIN. [Concomitant]
     Active Substance: GABAPENTIN
     Indication: BREAKTHROUGH PAIN
     Route: 065
  8. MORPHINE [Suspect]
     Active Substance: MORPHINE
     Route: 048
  9. TRAMADOL. [Concomitant]
     Active Substance: TRAMADOL
     Indication: NEURALGIA
     Route: 048
  10. PREGABALIN. [Concomitant]
     Active Substance: PREGABALIN
     Indication: NEURALGIA
     Route: 065
  11. MORPHINE [Suspect]
     Active Substance: MORPHINE
     Dosage: THE 24-HOUR CUMULATIVE MORPHINE DOSE FOR BREAKTHROUGH PAIN WAS EXCEEDING A 200 MG ORAL EQUIVALENT
     Route: 048
  12. MORPHINE [Suspect]
     Active Substance: MORPHINE
     Dosage: THE 24-HOUR CUMULATIVE MORPHINE DOSE FOR BREAKTHROUGH PAIN WAS EXCEEDING A 200 MG ORAL EQUIVALENT
     Route: 048
  13. FAMOTIDINE. [Suspect]
     Active Substance: FAMOTIDINE
     Indication: PRODUCT USED FOR UNKNOWN INDICATION
     Route: 048
  14. MORPHINE [Suspect]
     Active Substance: MORPHINE
     Indication: BREAKTHROUGH PAIN
     Route: 033
  15. MORPHINE [Suspect]
     Active Substance: MORPHINE
     Dosage: 10 MG MORPHINE INTRAPERITONEALLY EVERY 1 - 2 HOURS
     Route: 033

REACTIONS (2)
  - Hepatic function abnormal [Recovering/Resolving]
  - Hyperaesthesia [Recovered/Resolved]
